FAERS Safety Report 11189632 (Version 2)
Quarter: 2016Q2

REPORT INFORMATION
  Report Type: Spontaneous
  Country: US (occurrence: US)
  Receive Date: 20150615
  Receipt Date: 20160602
  Transmission Date: 20160815
  Serious: Yes (Hospitalization)
  Sender: FDA-Public Use
  Company Number: US-DSJP-DSU-2015-101659

PATIENT
  Sex: Male
  Weight: 77.98 kg

DRUGS (4)
  1. BENICAR [Suspect]
     Active Substance: OLMESARTAN MEDOXOMIL
     Indication: HYPERTENSION
     Dosage: 20 MG, QD
     Route: 048
     Dates: start: 20130405, end: 20140307
  2. BENICAR [Suspect]
     Active Substance: OLMESARTAN MEDOXOMIL
     Dosage: 40 MG, QD
  3. BENICAR HCT [Suspect]
     Active Substance: HYDROCHLOROTHIAZIDE\OLMESARTAN MEDOXOMIL
     Dosage: 40-12.5 MG HALF PER DAY
  4. BENICAR HCT [Suspect]
     Active Substance: HYDROCHLOROTHIAZIDE\OLMESARTAN MEDOXOMIL
     Indication: PRODUCT USED FOR UNKNOWN INDICATION
     Dosage: 40-12.5MG (HALF PER DAY)

REACTIONS (8)
  - Lymphocytosis [Unknown]
  - Decreased appetite [Unknown]
  - Abdominal pain [Unknown]
  - Flatulence [Unknown]
  - Product use issue [Unknown]
  - Malabsorption [Unknown]
  - Diarrhoea haemorrhagic [Unknown]
  - Coeliac disease [Unknown]

NARRATIVE: CASE EVENT DATE: 20140211
